FAERS Safety Report 9685656 (Version 1)
Quarter: 2013Q4

REPORT INFORMATION
  Report Type: Spontaneous
  Country: US (occurrence: US)
  Receive Date: 20131113
  Receipt Date: 20131113
  Transmission Date: 20140711
  Serious: No
  Sender: FDA-Public Use
  Company Number: US-GLAXOSMITHKLINE-A1040268A

PATIENT
  Sex: Male

DRUGS (4)
  1. CARVEDILOL [Suspect]
     Indication: VENTRICULAR EXTRASYSTOLES
     Dosage: 12.5MG TWICE PER DAY
     Route: 048
     Dates: start: 2009
  2. COREG CR [Suspect]
     Indication: VENTRICULAR EXTRASYSTOLES
     Route: 048
     Dates: start: 2009
  3. COREG [Suspect]
     Indication: VENTRICULAR EXTRASYSTOLES
     Dates: start: 1998
  4. ADVAIR [Concomitant]

REACTIONS (2)
  - Off label use [Not Recovered/Not Resolved]
  - Ventricular extrasystoles [Recovered/Resolved]
